FAERS Safety Report 9341870 (Version 3)
Quarter: 2013Q3

REPORT INFORMATION
  Report Type: Spontaneous
  Country: DE (occurrence: DE)
  Receive Date: 20130611
  Receipt Date: 20130820
  Transmission Date: 20140515
  Serious: Yes (Disabling)
  Sender: FDA-Public Use
  Company Number: DE-PFIZER INC-2013173942

PATIENT
  Age: 52 Year
  Sex: Female

DRUGS (13)
  1. MORPHINE SULFATE [Suspect]
     Indication: PAIN
     Dosage: 30 MG, UNK
     Route: 048
     Dates: end: 2010
  2. MORPHINE SULFATE [Suspect]
     Dosage: 60 MG, 3X/DAY
     Route: 048
     Dates: start: 2010
  3. MORPHINE SULFATE [Suspect]
     Indication: PAIN
     Dosage: 700MG PER 0,5ML PER DAY
     Route: 037
     Dates: start: 2005
  4. L-THYROXIN [Concomitant]
     Dosage: UNK
     Dates: start: 1989
  5. PANTOPRAZOL [Concomitant]
     Dosage: UNK
     Dates: start: 1990
  6. NOVALGIN [Concomitant]
     Dosage: UNK
     Dates: start: 1988
  7. VOLTAREN [Concomitant]
     Dosage: UNK
     Dates: start: 2006
  8. SALBUHEXAL [Concomitant]
     Dosage: UNK
     Dates: start: 1996
  9. FREKA-CLYSS [Concomitant]
     Dosage: UNK
     Dates: start: 2005
  10. FURO CT [Concomitant]
     Dosage: UNK
     Dates: start: 2002
  11. EMLAPATCH [Concomitant]
     Dosage: UNK
     Dates: start: 2010
  12. LEVOMEPROMAZIN-NEURAXPHARM [Concomitant]
     Dosage: UNK
     Dates: start: 2012
  13. VERSATIS [Concomitant]
     Dosage: UNK
     Dates: start: 2012

REACTIONS (4)
  - Tooth loss [Unknown]
  - Tooth fracture [Unknown]
  - Weight decreased [Unknown]
  - Malaise [Unknown]
